FAERS Safety Report 7388042-8 (Version None)
Quarter: 2011Q2

REPORT INFORMATION
  Report Type: 
  Country: None (occurrence: None)
  Receive Date: 20110401
  Receipt Date: 20110324
  Transmission Date: 20111010
  Serious: No
  Sender: FDA-Public Use
  Company Number: US-PFIZER INC-2011066670

PATIENT

DRUGS (1)
  1. CELEBREX [Suspect]
     Dosage: UNK

REACTIONS (3)
  - RASH GENERALISED [None]
  - SWELLING FACE [None]
  - DRUG HYPERSENSITIVITY [None]
